FAERS Safety Report 24868973 (Version 1)
Quarter: 2025Q1

REPORT INFORMATION
  Report Type: Spontaneous
  Country: US (occurrence: None)
  Receive Date: 20250121
  Receipt Date: 20250121
  Transmission Date: 20250408
  Serious: No
  Sender: FDA-CTU
  Company Number: None

PATIENT
  Age: 60 Year
  Sex: Female
  Weight: 64.41 kg

DRUGS (1)
  1. OPZELURA [Suspect]
     Active Substance: RUXOLITINIB PHOSPHATE
     Indication: Generalised pustular psoriasis
     Dosage: OTHER QUANTITY : APPLY THINA LAYER TO AFFECTED AREA;?FREQUENCY : TWICE A DAY;?
     Dates: start: 202404

REACTIONS (1)
  - Wrist fracture [None]
